FAERS Safety Report 4953902-1 (Version None)
Quarter: 2006Q1

REPORT INFORMATION
  Report Type: 
  Country: None (occurrence: None)
  Receive Date: 20060322
  Receipt Date: 20060310
  Transmission Date: 20060701
  Serious: Yes (Hospitalization)
  Sender: FDA-Public Use
  Company Number: 2006035472

PATIENT
  Age: 91 Year
  Sex: Male

DRUGS (6)
  1. AMLODIPINE [Suspect]
     Indication: ESSENTIAL HYPERTENSION
     Dosage: ORAL
     Route: 048
  2. DISCOTRINE (GLYCERYL TRINITRATE) [Concomitant]
  3. ZOCOR [Concomitant]
  4. JOSIR (TAMSULOSIN HYDROCHLORIDE) [Concomitant]
  5. PLAVIX [Concomitant]
  6. VISKEN [Concomitant]

REACTIONS (7)
  - BLISTER [None]
  - DERMATITIS BULLOUS [None]
  - ECZEMA [None]
  - EOSINOPHILIA [None]
  - HYPERTENSION [None]
  - PRURIGO [None]
  - SKIN DISORDER [None]
